FAERS Safety Report 5376726-2 (Version None)
Quarter: 2007Q2

REPORT INFORMATION
  Report Type: 
  Country: None (occurrence: None)
  Receive Date: 20070629
  Receipt Date: 20070629
  Transmission Date: 20071010
  Serious: No
  Sender: FDA-Public Use
  Company Number: None

PATIENT
  Sex: Female

DRUGS (1)
  1. ALBUTEROL [Suspect]
     Indication: ASTHMA
     Dosage: 0.83 MG/ML AS NEEDED ORAL
     Route: 048

REACTIONS (2)
  - SINUS POLYP [None]
  - THROAT IRRITATION [None]
